FAERS Safety Report 9608251 (Version 1)
Quarter: 2013Q4

REPORT INFORMATION
  Report Type: Spontaneous
  Country: SE (occurrence: None)
  Receive Date: 20131007
  Receipt Date: 20131007
  Transmission Date: 20140711
  Serious: Yes (Hospitalization, Other)
  Sender: FDA-Public Use
  Company Number: NGX_01991_2013

PATIENT
  Age: 91 Year
  Sex: Male

DRUGS (5)
  1. QUTENA (CAPSAICIN) [Suspect]
     Indication: POST HERPETIC NEURALGIA
     Dates: start: 20130612
  2. WARAN [Concomitant]
  3. GABAPENTIN [Concomitant]
  4. OXYCODONE [Concomitant]
  5. TARGINIQ [Concomitant]

REACTIONS (1)
  - Cerebrovascular disorder [None]
